FAERS Safety Report 18618215 (Version 1)
Quarter: 2020Q4

REPORT INFORMATION
  Report Type: Spontaneous
  Country: DE (occurrence: DE)
  Receive Date: 20201215
  Receipt Date: 20201215
  Transmission Date: 20210114
  Serious: Yes (Hospitalization, Other)
  Sender: FDA-Public Use
  Company Number: NVSC2020DE326047

PATIENT
  Age: 54 Year
  Sex: Male
  Weight: 86 kg

DRUGS (7)
  1. FILGRASTIM [Suspect]
     Active Substance: FILGRASTIM
     Indication: BLOOD STEM CELL HARVEST
     Dosage: 1 UNK, QD
     Route: 058
     Dates: start: 20201110, end: 20201116
  2. ELOTUZUMAB. [Concomitant]
     Active Substance: ELOTUZUMAB
     Indication: PLASMA CELL MYELOMA
     Dosage: 810 MG
     Route: 042
  3. LENALIDOMIDE [Concomitant]
     Active Substance: LENALIDOMIDE
     Indication: PLASMA CELL MYELOMA
     Dosage: 3.5 MG
     Route: 048
     Dates: start: 20200716
  4. DEXAMETHASONE. [Concomitant]
     Active Substance: DEXAMETHASONE
     Indication: PLASMA CELL MYELOMA
     Dosage: 2.8 MG
     Route: 048
     Dates: start: 20200716
  5. DEXAMETHASONE. [Concomitant]
     Active Substance: DEXAMETHASONE
     Dosage: 0.8 MG
     Route: 042
     Dates: start: 20200716
  6. CYCLOPHOSPHAMIDE. [Suspect]
     Active Substance: CYCLOPHOSPHAMIDE
     Indication: BLOOD STEM CELL HARVEST
     Dosage: ONE TIME DOSE (2610)
     Route: 042
     Dates: start: 20201106, end: 20201106
  7. CARFILZOMIB [Concomitant]
     Active Substance: CARFILZOMIB
     Indication: PLASMA CELL MYELOMA
     Dosage: 75 MG
     Route: 042
     Dates: start: 20200716

REACTIONS (2)
  - Neutropenia [Recovered/Resolved]
  - Febrile infection [Recovered/Resolved]

NARRATIVE: CASE EVENT DATE: 20201118
